FAERS Safety Report 11323186 (Version 2)
Quarter: 2015Q3

REPORT INFORMATION
  Report Type: Report from Study
  Country: IT (occurrence: IT)
  Receive Date: 20150730
  Receipt Date: 20150814
  Transmission Date: 20151125
  Serious: Yes (Hospitalization)
  Sender: FDA-Public Use
  Company Number: IT-AMGEN-ITACT2015076326

PATIENT
  Age: 50 Year
  Sex: Female

DRUGS (9)
  1. ALLOPURINOLO [Concomitant]
     Active Substance: ALLOPURINOL
     Dosage: 300 MG, QD
     Dates: start: 20150707, end: 20150721
  2. TARGIN [Concomitant]
     Active Substance: NALOXONE HYDROCHLORIDE\OXYCODONE HYDROCHLORIDE
     Dosage: 5-25 MG, BID
     Dates: start: 20150630
  3. LANSOPRAZOLE. [Concomitant]
     Active Substance: LANSOPRAZOLE
     Dosage: 30 MG, QD
     Dates: start: 20150630
  4. ACYCLOVIR                          /00587301/ [Concomitant]
     Active Substance: ACYCLOVIR
     Dosage: 800 MG, QD
     Dates: start: 20150707
  5. CARDIOASPIRIN [Concomitant]
     Active Substance: ASPIRIN
     Dosage: UNK UNK, QD
     Dates: start: 20150707
  6. BACTRIM [Concomitant]
     Active Substance: SULFAMETHOXAZOLE\TRIMETHOPRIM
     Dosage: 2 UNK, Q2WK
     Dates: start: 20150707, end: 20150721
  7. CARFILZOMIB [Suspect]
     Active Substance: CARFILZOMIB
     Indication: PLASMA CELL MYELOMA
     Dosage: 53.6 MG, PER CHEMO REGIM
     Route: 042
     Dates: start: 20150707
  8. DEXAMETHASONE. [Suspect]
     Active Substance: DEXAMETHASONE
     Indication: PLASMA CELL MYELOMA
     Dosage: 20 MG, PER CHEMO REGIM
     Route: 048
     Dates: start: 20150707, end: 20150718
  9. LAROXYL [Concomitant]
     Active Substance: AMITRIPTYLINE
     Dosage: 4 GTT, QD
     Dates: start: 20150630

REACTIONS (1)
  - Psychotic disorder [Recovered/Resolved]

NARRATIVE: CASE EVENT DATE: 20150718
